FAERS Safety Report 22311469 (Version 6)
Quarter: 2023Q4

REPORT INFORMATION
  Report Type: Spontaneous
  Country: FR (occurrence: FR)
  Receive Date: 20230511
  Receipt Date: 20231020
  Transmission Date: 20240109
  Serious: Yes (Hospitalization, Other)
  Sender: FDA-Public Use
  Company Number: None

PATIENT
  Age: 68 Year
  Sex: Female
  Weight: 50.4 kg

DRUGS (11)
  1. DAPTOMYCIN [Suspect]
     Active Substance: DAPTOMYCIN
     Indication: Infection
     Dosage: 500 MILLIGRAM, QD
     Route: 042
     Dates: start: 20230328, end: 20230425
  2. LANSOPRAZOLE [Suspect]
     Active Substance: LANSOPRAZOLE
     Indication: Infection
     Dosage: 15 MILLIGRAM, QD
     Route: 048
     Dates: start: 20230302, end: 20230423
  3. AMOXICILLIN [Concomitant]
     Active Substance: AMOXICILLIN
     Indication: Infection
     Dosage: 6 GRAM, QD
     Route: 042
     Dates: start: 20230411
  4. POTASSIUM CHLORIDE [Concomitant]
     Active Substance: POTASSIUM CHLORIDE
     Dosage: 3 DOSAGE FORM, QD
     Route: 048
  5. ACETAMINOPHEN [Concomitant]
     Active Substance: ACETAMINOPHEN
     Indication: Pain
     Dosage: 3 GRAM, QD
     Route: 048
  6. ATORVASTATIN [Concomitant]
     Active Substance: ATORVASTATIN
     Indication: Prophylaxis
     Dosage: 40 MILLIGRAM, QD
     Route: 048
  7. INNOVAIR [Concomitant]
     Active Substance: BECLOMETHASONE DIPROPIONATE\FORMOTEROL
     Dosage: 2 DOSAGE FORM, QD; FORMULATION: SOLUTION FOR INHALATION IN A PRESSURIZED VIAL
  8. KARDEGIC [Concomitant]
     Active Substance: ASPIRIN DL-LYSINE
     Indication: Cardiovascular event prophylaxis
     Dosage: 1 DOSAGE FORM, QD; FORMULATION: POWDER FOR ORAL SOLUTION IN SACHET-DOSE
     Route: 048
     Dates: start: 20230322
  9. LOVENOX [Concomitant]
     Active Substance: ENOXAPARIN SODIUM
     Dosage: 3000 INTERNATIONAL UNIT, QD
     Route: 058
     Dates: start: 202303
  10. ALFUZOSIN [Concomitant]
     Active Substance: ALFUZOSIN
     Dosage: 1 DOSAGE FORM, QD
     Route: 048
  11. AUGMENTIN [Concomitant]
     Active Substance: AMOXICILLIN\CLAVULANATE POTASSIUM
     Indication: Infection
     Dosage: STRENGTH: 2G/200MG; 6 GRAM, QD; FORMULATION
     Route: 042
     Dates: start: 20230411

REACTIONS (1)
  - Agranulocytosis [Recovered/Resolved]

NARRATIVE: CASE EVENT DATE: 20230419
